FAERS Safety Report 7224794-5 (Version None)
Quarter: 2011Q1

REPORT INFORMATION
  Report Type: 
  Country: None (occurrence: None)
  Receive Date: 20110113
  Receipt Date: 20110106
  Transmission Date: 20110831
  Serious: Yes (Hospitalization, Other)
  Sender: FDA-Public Use
  Company Number: BR-MEDIMMUNE-MEDI-0012170

PATIENT
  Sex: Male
  Weight: 12.4 kg

DRUGS (2)
  1. INHALER [Concomitant]
     Indication: BRONCHITIS
  2. SYNAGIS [Suspect]
     Route: 030

REACTIONS (5)
  - COUGH [None]
  - PHARYNGITIS [None]
  - CARDIOMEGALY [None]
  - FATIGUE [None]
  - DYSPNOEA [None]
